FAERS Safety Report 7396709-0 (Version None)
Quarter: 2011Q1

REPORT INFORMATION
  Report Type: 
  Country: None (occurrence: None)
  Receive Date: 20110331
  Receipt Date: 20110331
  Transmission Date: 20110831
  Serious: Yes (Life-Threatening)
  Sender: FDA-Public Use
  Company Number: None

PATIENT
  Sex: Female
  Weight: 58.0604 kg

DRUGS (8)
  1. SUNITINIB 37.5 MG PFIZER [Suspect]
     Indication: BLADDER CANCER
     Dosage: 37.5 MG DAILY PO
     Route: 048
     Dates: start: 20101122, end: 20110303
  2. ESTRADOIL-NORETHINDRON ACET [Concomitant]
  3. SYNTHROID [Concomitant]
  4. MIRAPEX [Concomitant]
  5. CLONAZAPAM [Concomitant]
  6. HTZ [Concomitant]
  7. ACETAMINOPHEN AND HYDROCODONE BITARTRATE [Concomitant]
  8. PRILOSEC [Concomitant]

REACTIONS (1)
  - ANAEMIA [None]
